FAERS Safety Report 7794090-6 (Version None)
Quarter: 2011Q4

REPORT INFORMATION
  Report Type: 
  Country: None (occurrence: None)
  Receive Date: 20111004
  Receipt Date: 20110927
  Transmission Date: 20120403
  Serious: Yes (Death, Other)
  Sender: FDA-Public Use
  Company Number: US-TEVA-302563USA

PATIENT
  Age: 15 Year
  Sex: Male

DRUGS (3)
  1. AMPHETAMINE AND DEXTROAMPHETAMINE SALTS [Suspect]
     Indication: ATTENTION DEFICIT/HYPERACTIVITY DISORDER
  2. SUMATRIPTAN SUCCINATE [Suspect]
  3. OXYCODONE HYDROCHLORIDE [Suspect]

REACTIONS (2)
  - HEADACHE [None]
  - UNRESPONSIVE TO STIMULI [None]
